FAERS Safety Report 8376195-4 (Version None)
Quarter: 2012Q2

REPORT INFORMATION
  Report Type: 
  Country: None (occurrence: None)
  Receive Date: 20120522
  Receipt Date: 20120516
  Transmission Date: 20120825
  Serious: Yes (Hospitalization)
  Sender: FDA-Public Use
  Company Number: US-BAYER-2012-049416

PATIENT
  Age: 42 Year
  Sex: Female
  Weight: 68 kg

DRUGS (21)
  1. MULTI-VITAMIN [Concomitant]
  2. OMEPRAZOLE [Concomitant]
     Dosage: 40 MG, QD
  3. MAXALT [Concomitant]
     Indication: HEADACHE
     Dosage: 10 MG, QD
  4. PROTONIX [Concomitant]
     Route: 042
  5. ROCEPHIN [Concomitant]
     Route: 042
  6. VITAMIN D [Concomitant]
  7. EPIPEN [Concomitant]
     Indication: ANAPHYLACTIC REACTION
     Dosage: 0.1 MG/ML, UNK
  8. ALBUTEROL [Concomitant]
     Dosage: UNK UNK, PRN
     Route: 055
  9. PRILOSEC [Concomitant]
     Dosage: 20 MG, UNK
  10. LEVAQUIN [Concomitant]
  11. CETIRIZINE [Concomitant]
     Dosage: 10 MG, UNK
  12. STEROIDS [Concomitant]
  13. YAZ [Suspect]
     Indication: HOT FLUSH
     Dosage: UNK
  14. DROSPIRENONE AND ETHINYL ESTRADIOL [Suspect]
  15. TORADOL [Concomitant]
     Route: 042
  16. DILAUDID [Concomitant]
     Route: 042
  17. ULTRACET [Concomitant]
     Dosage: EVERY 6 HOURS AS NEEDED
  18. ZOFRAN [Concomitant]
     Route: 042
  19. RESTORIL [Concomitant]
     Dosage: 15 MG, HS
  20. PROVENTIL-HFA [Concomitant]
     Indication: WHEEZING
     Dosage: 2 PUFF(S), EVERY 4-6 HOURS AS NEEDED
  21. MORPHINE [Concomitant]
     Route: 042

REACTIONS (3)
  - PULMONARY EMBOLISM [None]
  - DEEP VEIN THROMBOSIS [None]
  - PULMONARY INFARCTION [None]
